FAERS Safety Report 24310126 (Version 2)
Quarter: 2024Q3

REPORT INFORMATION
  Report Type: Spontaneous
  Country: US (occurrence: US)
  Receive Date: 20240912
  Receipt Date: 20240927
  Transmission Date: 20241017
  Serious: Yes (Death, Other)
  Sender: TEVA
  Company Number: US-TEVA-VS-3240667

PATIENT
  Age: 51 Year
  Sex: Female

DRUGS (5)
  1. CARBOPLATIN [Suspect]
     Active Substance: CARBOPLATIN
     Indication: Ovarian cancer stage III
     Dosage: RECEIVED 6 CYCLES
     Route: 065
  2. OLAPARIB [Suspect]
     Active Substance: OLAPARIB
     Indication: Ovarian cancer stage III
     Dosage: RECEIVED 6 CYCLES
     Route: 065
  3. CYCLOPHOSPHAMIDE [Suspect]
     Active Substance: CYCLOPHOSPHAMIDE
     Indication: Ovarian cancer stage III
     Dosage: RECEIVED 6 CYCLES
     Route: 065
  4. NIRAPARIB [Suspect]
     Active Substance: NIRAPARIB
     Indication: Ovarian cancer stage III
     Dosage: RECEIVED 4 CYCLES BEFORE LACK OF EFFICACY WAS NOTED.
     Route: 065
     Dates: start: 2019
  5. PEMBROLIZUMAB [Suspect]
     Active Substance: PEMBROLIZUMAB
     Indication: Ovarian cancer stage III
     Dosage: RECEIVED 4 CYCLES BEFORE LACK OF EFFICACY WAS NOTED.
     Route: 065
     Dates: start: 2019

REACTIONS (1)
  - Drug ineffective [Fatal]
